FAERS Safety Report 16284657 (Version 1)
Quarter: 2019Q2

REPORT INFORMATION
  Report Type: Spontaneous
  Country: US (occurrence: US)
  Receive Date: 20190508
  Receipt Date: 20190508
  Transmission Date: 20190711
  Serious: Yes (Disabling)
  Sender: FDA-Public Use
  Company Number: US-ROCHE-2311385

PATIENT
  Age: 83 Year
  Sex: Female
  Weight: 58.97 kg

DRUGS (2)
  1. DILANTIN [Interacting]
     Active Substance: PHENYTOIN
     Indication: SEIZURE
     Route: 065
  2. CAPECITABINE. [Suspect]
     Active Substance: CAPECITABINE
     Indication: SEIZURE
     Route: 048
     Dates: start: 201809, end: 201902

REACTIONS (1)
  - Drug interaction [Recovered/Resolved]

NARRATIVE: CASE EVENT DATE: 20190424
